FAERS Safety Report 8592135-7 (Version None)
Quarter: 2012Q3

REPORT INFORMATION
  Report Type: 
  Country: None (occurrence: None)
  Receive Date: 20120814
  Receipt Date: 20120806
  Transmission Date: 20120928
  Serious: Yes (Hospitalization)
  Sender: FDA-Public Use
  Company Number: US-BAYER-2011-075575

PATIENT
  Age: 24 Year
  Sex: Female
  Weight: 108 kg

DRUGS (3)
  1. COLACE [Concomitant]
  2. LORTAB [Concomitant]
  3. YAZ [Suspect]
     Dosage: UNK
     Dates: start: 20060101, end: 20090101

REACTIONS (3)
  - GALLBLADDER INJURY [None]
  - CHOLECYSTITIS ACUTE [None]
  - INJURY [None]
